FAERS Safety Report 16474767 (Version 1)
Quarter: 2019Q3

REPORT INFORMATION
  Report Type: Spontaneous
  Country: US (occurrence: US)
  Receive Date: 20190624
  Receipt Date: 20190624
  Transmission Date: 20191004
  Serious: Yes (Hospitalization)
  Sender: FDA-Public Use
  Company Number: None

PATIENT
  Age: 80 Year
  Sex: Male

DRUGS (2)
  1. ZYTIGA [Suspect]
     Active Substance: ABIRATERONE ACETATE
     Indication: PROSTATE CANCER
     Route: 048
  2. VELCADE [Concomitant]
     Active Substance: BORTEZOMIB

REACTIONS (5)
  - Nausea [None]
  - Vomiting [None]
  - Dehydration [None]
  - Therapy cessation [None]
  - Free prostate-specific antigen increased [None]

NARRATIVE: CASE EVENT DATE: 20190424
